FAERS Safety Report 15186581 (Version 2)
Quarter: 2019Q1

REPORT INFORMATION
  Report Type: Report from Study
  Country: US (occurrence: US)
  Receive Date: 20180723
  Receipt Date: 20190130
  Transmission Date: 20190417
  Serious: No
  Sender: FDA-Public Use
  Company Number: US-EXELIXIS-CABO-18012178

PATIENT
  Sex: Male

DRUGS (16)
  1. CABOMETYX [Suspect]
     Active Substance: CABOZANTINIB S-MALATE
     Indication: RENAL CANCER
     Dosage: 60 MG, QD
     Route: 048
     Dates: start: 20170922
  2. FENOFIBRATE. [Concomitant]
     Active Substance: FENOFIBRATE
  3. NOVOLOG [Concomitant]
     Active Substance: INSULIN ASPART
  4. VITAMIN B12 [Concomitant]
     Active Substance: CYANOCOBALAMIN
  5. CITALOPRAM [Concomitant]
     Active Substance: CITALOPRAM HYDROBROMIDE
  6. PANTOPRAZOLE SODIUM. [Concomitant]
     Active Substance: PANTOPRAZOLE SODIUM
  7. ESCITALOPRAM OXALATE. [Concomitant]
     Active Substance: ESCITALOPRAM OXALATE
  8. COZAAR [Concomitant]
     Active Substance: LOSARTAN POTASSIUM
  9. COQ10 [Concomitant]
     Active Substance: UBIDECARENONE
  10. TOUJEO [Concomitant]
     Active Substance: INSULIN GLARGINE
  11. CELECOXIB. [Concomitant]
     Active Substance: CELECOXIB
  12. METFORMIN [Concomitant]
     Active Substance: METFORMIN HYDROCHLORIDE
  13. DILAUDID [Concomitant]
     Active Substance: HYDROMORPHONE HYDROCHLORIDE
  14. HEPARIN LOCK FLUSH [Concomitant]
     Active Substance: HEPARIN SODIUM
  15. LACTULOSE. [Concomitant]
     Active Substance: LACTULOSE
  16. PRAVASTATIN. [Concomitant]
     Active Substance: PRAVASTATIN

REACTIONS (1)
  - Neoplasm [Unknown]
